FAERS Safety Report 4685888-1 (Version None)
Quarter: 2005Q2

REPORT INFORMATION
  Report Type: 
  Country: None (occurrence: None)
  Receive Date: 20050606
  Receipt Date: 20050525
  Transmission Date: 20051028
  Serious: Yes (Other)
  Sender: FDA-Public Use
  Company Number: 2005070644

PATIENT
  Age: 28 Year
  Sex: Male
  Weight: 71.2147 kg

DRUGS (3)
  1. ROGAINE [Suspect]
     Indication: ALOPECIA
     Dosage: 1 ML BID, TOPICAL
     Route: 061
     Dates: start: 20050301, end: 20050501
  2. DRUG UNSPECIFIED [Suspect]
     Indication: ALOPECIA
     Dates: start: 20050301, end: 20050503
  3. BUDESONIDE [Concomitant]

REACTIONS (16)
  - AMNESIA [None]
  - ANXIETY [None]
  - ASTHENIA [None]
  - BRADYPHRENIA [None]
  - CONFUSIONAL STATE [None]
  - DISTURBANCE IN ATTENTION [None]
  - DIZZINESS [None]
  - DYSPNOEA [None]
  - FATIGUE [None]
  - FEELING ABNORMAL [None]
  - HEART RATE INCREASED [None]
  - HYPOAESTHESIA [None]
  - LOSS OF CONSCIOUSNESS [None]
  - PARAESTHESIA [None]
  - VISION BLURRED [None]
  - VITREOUS FLOATERS [None]
